FAERS Safety Report 14367390 (Version 3)
Quarter: 2020Q4

REPORT INFORMATION
  Report Type: Report from Study
  Country: US (occurrence: US)
  Receive Date: 20180109
  Receipt Date: 20201105
  Transmission Date: 20210113
  Serious: Yes (Other)
  Sender: FDA-Public Use
  Company Number: US-SA-2018SA004710

PATIENT

DRUGS (14)
  1. CIPROFLOXACIN. [Concomitant]
     Active Substance: CIPROFLOXACIN
     Dosage: 250 MG,BID
     Route: 048
  2. SILENOR [Concomitant]
     Active Substance: DOXEPIN HYDROCHLORIDE
     Dosage: 3 MG,HS
     Route: 048
  3. CYANOCOBALAMIN. [Concomitant]
     Active Substance: CYANOCOBALAMIN
     Dosage: 1000 M TWICE A MONTH
  4. SYNTHROID [Concomitant]
     Active Substance: LEVOTHYROXINE SODIUM
     Dosage: 88 UG,QD
  5. PREDNISONE. [Concomitant]
     Active Substance: PREDNISONE
     Dosage: 20 MG,QD
     Route: 048
  6. AMPYRA [Concomitant]
     Active Substance: DALFAMPRIDINE
     Dosage: 10 MG,BID
  7. ADDERALL [Concomitant]
     Active Substance: AMPHETAMINE ASPARTATE\AMPHETAMINE SULFATE\DEXTROAMPHETAMINE SACCHARATE\DEXTROAMPHETAMINE SULFATE
     Dosage: 20 MG,BID
  8. DIFLUCAN [Concomitant]
     Active Substance: FLUCONAZOLE
     Dosage: 150 MG,QD
     Route: 048
  9. BACLOFEN. [Concomitant]
     Active Substance: BACLOFEN
     Dosage: 10 MG,QD
     Route: 048
  10. VALIUM [Concomitant]
     Active Substance: DIAZEPAM
     Dosage: 5 MG,UNK
  11. ZITHROMAX [Concomitant]
     Active Substance: AZITHROMYCIN DIHYDRATE
     Dosage: 250 MG,UNK
  12. ALEMTUZUMAB [Suspect]
     Active Substance: ALEMTUZUMAB
     Indication: RELAPSING-REMITTING MULTIPLE SCLEROSIS
     Dosage: 12 MG, QD
     Route: 041
     Dates: start: 20161024, end: 20161028
  13. BACTRIM [Concomitant]
     Active Substance: SULFAMETHOXAZOLE\TRIMETHOPRIM
     Dosage: UNK UNK,BID
     Route: 048
  14. VIMPAT [Concomitant]
     Active Substance: LACOSAMIDE
     Dosage: 200 MG,BID

REACTIONS (12)
  - Bacterial test positive [Not Recovered/Not Resolved]
  - White blood cells urine positive [Recovered/Resolved]
  - Fall [Unknown]
  - Fatigue [Not Recovered/Not Resolved]
  - Feeling abnormal [Not Recovered/Not Resolved]
  - Asthenia [Not Recovered/Not Resolved]
  - White blood cell count decreased [Not Recovered/Not Resolved]
  - Blood urine present [Recovered/Resolved]
  - Neutropenia [Not Recovered/Not Resolved]
  - Urine analysis abnormal [Not Recovered/Not Resolved]
  - Urine abnormality [Recovered/Resolved]
  - Neutrophil count decreased [Not Recovered/Not Resolved]

NARRATIVE: CASE EVENT DATE: 20170228
